FAERS Safety Report 18842290 (Version 2)
Quarter: 2021Q3

REPORT INFORMATION
  Report Type: Other
  Country: US (occurrence: US)
  Receive Date: 20210204
  Receipt Date: 20210811
  Transmission Date: 20211014
  Serious: No
  Sender: FDA-Public Use
  Company Number: US-ROCHE-2596695

PATIENT
  Age: 47 Year
  Sex: Female
  Weight: 79.45 kg

DRUGS (6)
  1. VITAMIN B12 [Concomitant]
     Active Substance: CYANOCOBALAMIN
     Indication: VITAMIN B12 DECREASED
     Dosage: ONGOING YES?19TH OF EVERY MONTH
  2. OCREVUS [Suspect]
     Active Substance: OCRELIZUMAB
     Indication: RELAPSING MULTIPLE SCLEROSIS
     Dosage: DATE OF TREATMENT = 30/MAY/2018, 22/FEB/2019, 15/OCT/2019, 29/OCT/2019, 23/AUG/2020, 23/FEB/2021
     Route: 042
     Dates: start: 20180516
  3. GABAPENTIN. [Concomitant]
     Active Substance: GABAPENTIN
     Dosage: ONGOING YES?IN THE MORNING
     Route: 048
  4. GABAPENTIN. [Concomitant]
     Active Substance: GABAPENTIN
     Indication: MUSCLE TWITCHING
     Dosage: ONGOING YES?TWO 400 MG PILLS AT NIGHT
     Route: 048
  5. ADDERALL [Concomitant]
     Active Substance: AMPHETAMINE ASPARTATE\AMPHETAMINE SULFATE\DEXTROAMPHETAMINE SACCHARATE\DEXTROAMPHETAMINE SULFATE
     Indication: FATIGUE
     Dosage: ONGOING YES?ONE IN THE MORNING AND ONE AT NOON
     Route: 048
     Dates: start: 2019
  6. OCREVUS [Suspect]
     Active Substance: OCRELIZUMAB
     Dosage: 2ND DOSE IN 2 WKS
     Route: 042

REACTIONS (3)
  - COVID-19 [Not Recovered/Not Resolved]
  - Headache [Not Recovered/Not Resolved]
  - Pyrexia [Not Recovered/Not Resolved]

NARRATIVE: CASE EVENT DATE: 20200427
